FAERS Safety Report 8082465-X (Version None)
Quarter: 2012Q1

REPORT INFORMATION
  Report Type: 
  Country: None (occurrence: None)
  Receive Date: 20120127
  Receipt Date: 20110221
  Transmission Date: 20120608
  Serious: No
  Sender: FDA-Public Use
  Company Number: US-ABBOTT-11P-163-0706461-00

PATIENT
  Age: 54 Year
  Sex: Female

DRUGS (9)
  1. HUMIRA [Suspect]
     Indication: COGAN'S SYNDROME
     Dates: start: 20110127
  2. TRAMADOL HCL [Concomitant]
     Indication: PAIN
  3. FLUOXETINE [Concomitant]
     Indication: DEPRESSION
  4. VITAMIN D [Concomitant]
     Indication: PRODUCT USED FOR UNKNOWN INDICATION
  5. ENDOMETHACIN [Concomitant]
     Indication: ANTIINFLAMMATORY THERAPY
  6. NEURONTIN [Concomitant]
     Indication: INSOMNIA
     Dosage: AT NIGHT
  7. PRAVASTATIN [Concomitant]
     Indication: BLOOD CHOLESTEROL
  8. PLAQUENIL [Concomitant]
     Indication: PRODUCT USED FOR UNKNOWN INDICATION
  9. CALCIUM [Concomitant]
     Indication: PRODUCT USED FOR UNKNOWN INDICATION

REACTIONS (4)
  - MOBILITY DECREASED [None]
  - COUGH [None]
  - FURUNCLE [None]
  - PAIN [None]
